FAERS Safety Report 5086006-0 (Version None)
Quarter: 2006Q3

REPORT INFORMATION
  Report Type: 
  Country: None (occurrence: None)
  Receive Date: 20060817
  Receipt Date: 20060803
  Transmission Date: 20061208
  Serious: Yes (Hospitalization)
  Sender: FDA-Public Use
  Company Number: S06-FRA-03076-01

PATIENT
  Age: 69 Year
  Sex: Female

DRUGS (2)
  1. SEROPLEX (ESCITALOPRAM) [Suspect]
     Dates: start: 20060526, end: 20060601
  2. VANCOMYCIN [Concomitant]

REACTIONS (7)
  - CARDIAC VALVE VEGETATION [None]
  - DRUG ERUPTION [None]
  - ERYTHEMA [None]
  - HYPERTHERMIA [None]
  - RASH MACULAR [None]
  - URTICARIA [None]
  - VASCULAR PURPURA [None]
